FAERS Safety Report 10308647 (Version 2)
Quarter: 2014Q4

REPORT INFORMATION
  Report Type: Spontaneous
  Country: US (occurrence: US)
  Receive Date: 20140716
  Receipt Date: 20141216
  Transmission Date: 20150528
  Serious: Yes (Hospitalization, Other)
  Sender: FDA-Public Use
  Company Number: US-PFIZER INC-2014195687

PATIENT
  Age: 58 Year
  Sex: Female

DRUGS (1)
  1. GABAPENTIN. [Suspect]
     Active Substance: GABAPENTIN
     Indication: PAIN
     Dosage: UNK
     Route: 048

REACTIONS (14)
  - Vision blurred [Unknown]
  - Photosensitivity reaction [Unknown]
  - Sexual dysfunction [Unknown]
  - Depression [Unknown]
  - Impaired work ability [Unknown]
  - Post-traumatic stress disorder [Unknown]
  - Weight decreased [Unknown]
  - Visual acuity reduced [Unknown]
  - Feeling hot [Unknown]
  - Fatigue [Unknown]
  - Drug ineffective for unapproved indication [Unknown]
  - Stevens-Johnson syndrome [Not Recovered/Not Resolved]
  - Hypohidrosis [Unknown]
  - Ageusia [Unknown]

NARRATIVE: CASE EVENT DATE: 201207
